FAERS Safety Report 13052923 (Version 2)
Quarter: 2016Q4

REPORT INFORMATION
  Report Type: Report from Study
  Country: US (occurrence: US)
  Receive Date: 20161222
  Receipt Date: 20161227
  Transmission Date: 20170207
  Serious: No
  Sender: FDA-Public Use
  Company Number: US-AMGEN-USASL2016176404

PATIENT
  Age: 58 Year
  Sex: Male

DRUGS (1)
  1. ENBREL [Suspect]
     Active Substance: ETANERCEPT
     Indication: RHEUMATOID ARTHRITIS
     Dosage: 50 MG, ONCE WEEKLY
     Route: 065
     Dates: start: 20161129

REACTIONS (4)
  - Injection site induration [Unknown]
  - Injection site discolouration [Recovered/Resolved]
  - Injection site hyperaesthesia [Unknown]
  - Injection site rash [Unknown]

NARRATIVE: CASE EVENT DATE: 2016
